FAERS Safety Report 6635649-9 (Version None)
Quarter: 2010Q1

REPORT INFORMATION
  Report Type: 
  Country: None (occurrence: None)
  Receive Date: 20100312
  Receipt Date: 20100312
  Transmission Date: 20100710
  Serious: Yes (Hospitalization)
  Sender: FDA-Public Use
  Company Number: None

PATIENT
  Age: 39 Year
  Sex: Female
  Weight: 58.4 kg

DRUGS (5)
  1. LENALIDOMIDE [Suspect]
     Indication: HODGKIN'S DISEASE
     Dosage: 20 MG QDAY PO
     Route: 048
     Dates: start: 20090805
  2. AMBIEN [Concomitant]
  3. ACYCLOVIR [Concomitant]
  4. CIPROFLOXACIN [Concomitant]
  5. PREDNISONE TAB [Concomitant]

REACTIONS (2)
  - DEAFNESS [None]
  - VISUAL IMPAIRMENT [None]
